FAERS Safety Report 10565306 (Version 2)
Quarter: 2014Q4

REPORT INFORMATION
  Report Type: Spontaneous
  Country: US (occurrence: None)
  Receive Date: 20141103
  Receipt Date: 20141117
  Transmission Date: 20150529
  Serious: No
  Sender: FDA-Public Use
  Company Number: 2014-00095

PATIENT
  Age: 72 Year
  Sex: Male
  Weight: 108.86 kg

DRUGS (3)
  1. ZICAM COLD REMEDY RAPIDMELTS [Suspect]
     Active Substance: ZINC ACETATE ANHYDROUS\ZINC GLUCONATE
     Indication: NASOPHARYNGITIS
     Dosage: ORAL, 2 DOSES
     Route: 048
     Dates: start: 20141029
  2. ALEVE [Concomitant]
     Active Substance: NAPROXEN SODIUM
  3. ZICAM COLD REMEDY RAPIDMELTS [Suspect]
     Active Substance: ZINC ACETATE ANHYDROUS\ZINC GLUCONATE
     Indication: INFLUENZA
     Dosage: ORAL, 2 DOSES
     Route: 048
     Dates: start: 20141029

REACTIONS (1)
  - Ageusia [None]

NARRATIVE: CASE EVENT DATE: 20141029
